FAERS Safety Report 17762923 (Version 7)
Quarter: 2022Q1

REPORT INFORMATION
  Report Type: Spontaneous
  Country: US (occurrence: US)
  Receive Date: 20200508
  Receipt Date: 20220321
  Transmission Date: 20220423
  Serious: Yes (Death, Hospitalization)
  Sender: FDA-Public Use
  Company Number: US-VIFOR (INTERNATIONAL) INC.-VIT-2020-05562

PATIENT
  Age: 63 Year
  Sex: Male
  Weight: 140.74 kg

DRUGS (28)
  1. VELTASSA [Suspect]
     Active Substance: PATIROMER
     Indication: Hyperkalaemia
     Route: 048
  2. VELTASSA [Suspect]
     Active Substance: PATIROMER
     Route: 048
     Dates: start: 201807
  3. VELTASSA [Suspect]
     Active Substance: PATIROMER
     Route: 048
     Dates: start: 20180810
  4. VELTASSA [Suspect]
     Active Substance: PATIROMER
     Route: 048
     Dates: start: 20190627
  5. VELTASSA [Suspect]
     Active Substance: PATIROMER
     Route: 048
     Dates: start: 2020
  6. VELTASSA [Suspect]
     Active Substance: PATIROMER
     Route: 048
     Dates: start: 2020
  7. ALLOPURINOL [Concomitant]
     Active Substance: ALLOPURINOL
     Route: 048
  8. ASPIRIN [Concomitant]
     Active Substance: ASPIRIN
     Route: 048
  9. ATORVASTATIN CALCIUM [Concomitant]
     Active Substance: ATORVASTATIN CALCIUM
     Route: 048
  10. CLONIDINE HYDROCHLORIDE [Concomitant]
     Active Substance: CLONIDINE HYDROCHLORIDE
     Route: 048
     Dates: start: 20190219
  11. FUROSEMIDE [Concomitant]
     Active Substance: FUROSEMIDE
     Dosage: 2 TABLETS EVERY MORNING
     Route: 048
     Dates: start: 20181023
  12. GABAPENTIN [Concomitant]
     Active Substance: GABAPENTIN
     Dosage: TAKE 1 TO 2 CAPSULES EVERY NIGHT AT BEDTIME
     Route: 048
     Dates: start: 20200415
  13. GLIPIZIDE [Concomitant]
     Active Substance: GLIPIZIDE
     Route: 048
  14. HYDRALAZINE HCL [Concomitant]
     Active Substance: HYDRALAZINE HYDROCHLORIDE
     Route: 048
     Dates: start: 20171002
  15. LABETALOL HYDROCHLORIDE [Concomitant]
     Active Substance: LABETALOL HYDROCHLORIDE
     Route: 048
     Dates: start: 20200113
  16. LEVEMIR [Concomitant]
     Active Substance: INSULIN DETEMIR
     Dosage: AS DIRECTED.
     Route: 058
  17. LOSARTAN POTASSIUM [Concomitant]
     Active Substance: LOSARTAN POTASSIUM
     Route: 048
  18. LOSARTAN POTASSIUM [Concomitant]
     Active Substance: LOSARTAN POTASSIUM
     Route: 048
     Dates: start: 20190117
  19. MONTELUKAST SODIUM [Concomitant]
     Active Substance: MONTELUKAST SODIUM
     Dosage: AT BEDTIME.
     Route: 048
  20. NORCO [Concomitant]
     Active Substance: ACETAMINOPHEN\HYDROCODONE BITARTRATE
     Dosage: 10-325 MG, TAKE ONE-HALF TABLET TWICE DAILY PRN
     Route: 048
  21. NOVOLOG [Concomitant]
     Active Substance: INSULIN ASPART
     Dosage: AS DIRECTED
     Route: 058
  22. RANITIDINE HYDROCHLORIDE [Concomitant]
     Active Substance: RANITIDINE HYDROCHLORIDE
     Dosage: TAKE 2 TABLETS AT BEDTIME
  23. SODIUM BICARBONATE [Concomitant]
     Active Substance: SODIUM BICARBONATE
     Dosage: 2 TABLETS TWICE A DAY WITH MEALS
     Route: 048
     Dates: start: 20170731
  24. TIZANIDINE HYDROCHLORIDE [Concomitant]
     Active Substance: TIZANIDINE HYDROCHLORIDE
     Route: 048
  25. VIAGRA [Concomitant]
     Active Substance: SILDENAFIL CITRATE
     Dosage: 1 HOUR BEFORE NEEDED
     Route: 048
  26. VICTOZA [Concomitant]
     Active Substance: LIRAGLUTIDE
     Dosage: 18 MG/3 ML, 1.2 SQ EVERY MORNING
     Route: 058
  27. VITAMIN C [Concomitant]
     Active Substance: ASCORBIC ACID
     Route: 048
  28. VITAMIN D [Concomitant]
     Active Substance: VITAMIN D NOS
     Dosage: 50 MCG (2000 UT)
     Route: 048

REACTIONS (6)
  - Death [Fatal]
  - Herpes zoster [Recovered/Resolved]
  - Blood potassium increased [Recovered/Resolved]
  - Dialysis [Unknown]
  - Off label use [Unknown]
  - Pericardial effusion [Recovered/Resolved]

NARRATIVE: CASE EVENT DATE: 20200101
